FAERS Safety Report 18160969 (Version 1)
Quarter: 2020Q3

REPORT INFORMATION
  Report Type: Spontaneous
  Country: US (occurrence: US)
  Receive Date: 20200818
  Receipt Date: 20200818
  Transmission Date: 20201103
  Serious: Yes (Hospitalization, Other)
  Sender: FDA-Public Use
  Company Number: US-SA-2020SA209416

PATIENT

DRUGS (6)
  1. FENTANYL. [Concomitant]
     Active Substance: FENTANYL
     Dosage: UNK
     Route: 065
     Dates: start: 20170329
  2. PERCOCET [Concomitant]
     Active Substance: ACETAMINOPHEN\OXYCODONE HYDROCHLORIDE
     Dosage: UNK
     Route: 065
     Dates: start: 20160609
  3. IBUPROFEN. [Concomitant]
     Active Substance: IBUPROFEN
     Dosage: UNK
     Route: 065
     Dates: start: 20170701
  4. EVEROLIMUS. [Suspect]
     Active Substance: EVEROLIMUS
     Indication: COLORECTAL CANCER
     Dosage: 5 MG, QW
     Route: 048
     Dates: start: 20170425
  5. LOVENOX [Suspect]
     Active Substance: ENOXAPARIN SODIUM
     Indication: PULMONARY EMBOLISM
     Dosage: 70 MG, Q12H
     Route: 058
     Dates: start: 20170425, end: 20170703
  6. SPARTALIZUMAB [Suspect]
     Active Substance: SPARTALIZUMAB
     Indication: COLORECTAL CANCER
     Dosage: 400 MG, Q4W
     Route: 048
     Dates: start: 20170425

REACTIONS (7)
  - Haemorrhoids [Unknown]
  - Haemoglobin decreased [Unknown]
  - Flank pain [Unknown]
  - Insomnia [Unknown]
  - Faeces discoloured [Unknown]
  - Hydronephrosis [Recovered/Resolved]
  - Rectal haemorrhage [Recovered/Resolved]

NARRATIVE: CASE EVENT DATE: 20170515
